FAERS Safety Report 5149187-6 (Version None)
Quarter: 2006Q4

REPORT INFORMATION
  Report Type: 
  Country: None (occurrence: None)
  Receive Date: 20061113
  Receipt Date: 20060830
  Transmission Date: 20070319
  Serious: No
  Sender: FDA-Public Use
  Company Number: MCN:461695

PATIENT
  Age: 42 Year
  Sex: Male

DRUGS (2)
  1. COREG [Suspect]
     Indication: CARDIOMEGALY
     Dosage: 50MG PER DAY
     Route: 048
     Dates: start: 20050701
  2. ALTACE [Concomitant]
     Dosage: 10MG PER DAY
     Route: 048

REACTIONS (3)
  - MUSCLE SPASMS [None]
  - SOMNOLENCE [None]
  - TEMPERATURE INTOLERANCE [None]
